FAERS Safety Report 8996694 (Version 1)
Quarter: 2013Q1

REPORT INFORMATION
  Report Type: Spontaneous
  Country: US (occurrence: US)
  Receive Date: 20130104
  Receipt Date: 20130104
  Transmission Date: 20140127
  Serious: Yes (Other)
  Sender: FDA-Public Use
  Company Number: PHEH2012US025595

PATIENT
  Sex: Female

DRUGS (8)
  1. ZOMETA [Suspect]
  2. LIPITOR [Concomitant]
     Dosage: UNK UKN, UNK
  3. PLAVIX [Concomitant]
     Dosage: UNK UKN, UNK
  4. CITALOPRAM [Concomitant]
     Dosage: UNK UKN, UNK
  5. WARFARIN [Concomitant]
     Dosage: UNK UKN, UNK
  6. XANAX [Concomitant]
     Dosage: UNK UKN, UNK
  7. REVLIMID [Concomitant]
     Dosage: UNK UKN, UNK
  8. DEXAMETHASONE [Concomitant]
     Dosage: UNK UKN, UNK

REACTIONS (3)
  - Gingival infection [Unknown]
  - Osteomyelitis [Unknown]
  - Oedema mouth [Unknown]
